FAERS Safety Report 9753532 (Version 1)
Quarter: 2013Q4

REPORT INFORMATION
  Report Type: Spontaneous
  Country: US (occurrence: US)
  Receive Date: 20131213
  Receipt Date: 20131213
  Transmission Date: 20140711
  Serious: Yes (Other)
  Sender: FDA-Public Use
  Company Number: US-PFIZER INC-2013353741

PATIENT
  Age: 86 Year
  Sex: Male

DRUGS (3)
  1. TIKOSYN [Suspect]
     Dosage: UNK
     Route: 065
     Dates: start: 201208, end: 201311
  2. MEPRON [Suspect]
     Indication: LYME DISEASE
     Dosage: 5 ML, 2X/DAY
     Route: 048
     Dates: start: 201307
  3. METOPROLOL [Concomitant]
     Dosage: UNK

REACTIONS (4)
  - Cognitive disorder [Recovering/Resolving]
  - Nausea [Recovered/Resolved]
  - Confusional state [Recovering/Resolving]
  - Urticaria [Recovering/Resolving]
